FAERS Safety Report 6244605-4 (Version None)
Quarter: 2009Q2

REPORT INFORMATION
  Report Type: 
  Country: None (occurrence: None)
  Receive Date: 20090623
  Receipt Date: 20090623
  Transmission Date: 20091009
  Serious: Yes (Hospitalization)
  Sender: FDA-Public Use
  Company Number: None

PATIENT
  Age: 86 Year
  Sex: Male
  Weight: 79.8 kg

DRUGS (10)
  1. AMARYL [Suspect]
     Indication: TYPE 2 DIABETES MELLITUS
     Dosage: 2 MG DAILY PO (CHRONIC)
     Route: 048
  2. BETIMOL [Concomitant]
  3. COREG [Concomitant]
  4. COUMADIN [Concomitant]
  5. DARVOCET-N 100 [Concomitant]
  6. LASIX [Concomitant]
  7. LEVOTHYROXINE SODIUM [Concomitant]
  8. NEXIUM [Concomitant]
  9. LISINOPRIL [Concomitant]
  10. VITAMIN B-12 [Concomitant]

REACTIONS (6)
  - BLOOD GLUCOSE DECREASED [None]
  - HYPERGLYCAEMIA [None]
  - PAIN [None]
  - RENAL FAILURE [None]
  - URINARY TRACT INFECTION [None]
  - WEIGHT DECREASED [None]
